FAERS Safety Report 7812525-7 (Version None)
Quarter: 2011Q4

REPORT INFORMATION
  Report Type: 
  Country: None (occurrence: None)
  Receive Date: 20111011
  Receipt Date: 20111003
  Transmission Date: 20120403
  Serious: Yes (Death)
  Sender: FDA-Public Use
  Company Number: 2011MA014670

PATIENT
  Age: 19 Year
  Sex: Female

DRUGS (4)
  1. OXYCODONE HCL [Suspect]
  2. VENLAFAXINE HYDROCHLORIDE [Suspect]
  3. TEMAZEPAM [Suspect]
  4. DIAZEPAM [Suspect]

REACTIONS (2)
  - ACCIDENTAL DEATH [None]
  - MULTIPLE DRUG OVERDOSE [None]
